FAERS Safety Report 5883789-4 (Version None)
Quarter: 2008Q3

REPORT INFORMATION
  Report Type: 
  Country: None (occurrence: None)
  Receive Date: 20080915
  Receipt Date: 20080904
  Transmission Date: 20090109
  Serious: Yes (Death, Hospitalization, Other)
  Sender: FDA-Public Use
  Company Number: US-AMGEN-QUU302439

PATIENT
  Sex: Male
  Weight: 77.2 kg

DRUGS (20)
  1. ENBREL [Suspect]
     Indication: PSORIASIS
     Route: 058
     Dates: start: 20070501, end: 20070701
  2. CELEXA [Concomitant]
     Route: 048
  3. UNSPECIFIED STEROIDS [Concomitant]
  4. BUSPAR [Concomitant]
  5. XANAX [Concomitant]
  6. AMBIEN [Concomitant]
     Route: 048
  7. PREDNISONE TAB [Concomitant]
     Route: 048
  8. TRIAMCINOLONE [Concomitant]
     Route: 061
     Dates: start: 20070403
  9. QUININE [Concomitant]
  10. MILK OF MAGNESIA [Concomitant]
  11. DOCUSATE [Concomitant]
  12. NOVOLIN R [Concomitant]
  13. POTASSIUM CHLORIDE [Concomitant]
  14. VICODIN [Concomitant]
  15. DULCOLAX [Concomitant]
  16. BENADRYL [Concomitant]
  17. MARINOL [Concomitant]
     Route: 048
  18. LOVENOX [Concomitant]
     Route: 058
  19. PRIMAXIN [Concomitant]
     Route: 042
  20. MULTI-VITAMINS [Concomitant]

REACTIONS (20)
  - ALTERED STATE OF CONSCIOUSNESS [None]
  - ANGER [None]
  - ANXIETY DISORDER [None]
  - CARDIAC FAILURE CONGESTIVE [None]
  - CONFUSIONAL STATE [None]
  - CONVULSION [None]
  - DEMYELINATION [None]
  - HYPERTENSION [None]
  - INSOMNIA [None]
  - IRRITABILITY [None]
  - LETHARGY [None]
  - LOSS OF CONSCIOUSNESS [None]
  - MALAISE [None]
  - NORMOCHROMIC NORMOCYTIC ANAEMIA [None]
  - NUCLEAR MAGNETIC RESONANCE IMAGING BRAIN ABNORMAL [None]
  - PLEURAL EFFUSION [None]
  - PNEUMONIA [None]
  - PSORIASIS [None]
  - PSYCHOTIC DISORDER [None]
  - SEPSIS [None]
